FAERS Safety Report 5632142-7 (Version None)
Quarter: 2008Q1

REPORT INFORMATION
  Report Type: 
  Country: None (occurrence: None)
  Receive Date: 20080220
  Receipt Date: 20080207
  Transmission Date: 20080703
  Serious: Yes (Hospitalization, Disabling)
  Sender: FDA-Public Use
  Company Number: US-AVENTIS-200712727US

PATIENT
  Sex: Male

DRUGS (14)
  1. KETEK [Suspect]
     Indication: BRONCHITIS
     Dosage: DOSE: UNK
     Route: 048
     Dates: start: 20050301
  2. ERYTHROMYCIN [Suspect]
     Dosage: DOSE: UNK
  3. PROZAC [Concomitant]
  4. LITHIUM CARBONATE [Concomitant]
     Dosage: DOSE: 300 MG 3-4 QD
  5. NEURONTIN [Concomitant]
  6. LAMICTAL [Concomitant]
  7. PROVIGIL [Concomitant]
     Dosage: DOSE: UNK
  8. ALBUTEROL [Concomitant]
     Indication: BRONCHITIS
     Dosage: DOSE: PUFFS
     Route: 055
  9. MEDROL [Concomitant]
     Dosage: DOSE: UNK
  10. PRILOSEC [Concomitant]
     Dosage: DOSE: UNK
  11. PROMETHAZINE W/ CODEINE [Concomitant]
     Dosage: DOSE QUANTITY: 1; DOSE UNIT: TEASPOON
  12. LOTENSIN                           /00909102/ [Concomitant]
     Dosage: DOSE: 1O
  13. PREDNISONE TAB [Concomitant]
     Indication: BRONCHITIS
     Dosage: DOSE: UNK
     Dates: start: 20070301
  14. NOVOLOG [Concomitant]
     Dosage: DOSE: VIA INSULIN PUMP SINCE 2000
     Dates: start: 20000101

REACTIONS (29)
  - ABDOMINAL DISCOMFORT [None]
  - ABDOMINAL DISTENSION [None]
  - ABDOMINAL PAIN [None]
  - ACARODERMATITIS [None]
  - ANOREXIA [None]
  - ASCITES [None]
  - ASTHENIA [None]
  - BACK PAIN [None]
  - CONSTIPATION [None]
  - COUGH [None]
  - FATIGUE [None]
  - GOITRE [None]
  - HEPATIC ENZYME INCREASED [None]
  - HEPATITIS [None]
  - HYPERHIDROSIS [None]
  - JAUNDICE [None]
  - LIVER DISORDER [None]
  - NAUSEA [None]
  - OCULAR ICTERUS [None]
  - OEDEMA PERIPHERAL [None]
  - PARAESTHESIA [None]
  - PRURITUS [None]
  - PYREXIA [None]
  - SENSORY DISTURBANCE [None]
  - SKIN DISORDER [None]
  - SMALL INTESTINAL OBSTRUCTION [None]
  - SPLENOMEGALY [None]
  - VISION BLURRED [None]
  - VOMITING [None]
